FAERS Safety Report 14459604 (Version 1)
Quarter: 2018Q1

REPORT INFORMATION
  Report Type: Spontaneous
  Country: US (occurrence: US)
  Receive Date: 20180129
  Receipt Date: 20180129
  Transmission Date: 20180509
  Serious: No
  Sender: FDA-Public Use
  Company Number: None

PATIENT
  Age: 47 Year
  Sex: Male
  Weight: 63 kg

DRUGS (1)
  1. MUCINEX DM [Suspect]
     Active Substance: DEXTROMETHORPHAN HYDROBROMIDE\GUAIFENESIN
     Indication: INFLUENZA
     Dosage: ?          QUANTITY:1 TABLET(S);?
     Route: 048
     Dates: start: 20180125, end: 20180129

REACTIONS (6)
  - Dry mouth [None]
  - Bradyphrenia [None]
  - Hypoaesthesia oral [None]
  - Accidental overdose [None]
  - Dizziness [None]
  - Disorientation [None]

NARRATIVE: CASE EVENT DATE: 20180129
